FAERS Safety Report 12975852 (Version 2)
Quarter: 2016Q4

REPORT INFORMATION
  Report Type: Report from Study
  Country: AU (occurrence: AU)
  Receive Date: 20161125
  Receipt Date: 20161206
  Transmission Date: 20170207
  Serious: Yes (Hospitalization, Other)
  Sender: FDA-Public Use
  Company Number: PHHY2016AU160127

PATIENT
  Age: 24 Year
  Sex: Male

DRUGS (34)
  1. CLOZARIL [Suspect]
     Active Substance: CLOZAPINE
     Dosage: 400 MG, UNK
     Route: 048
     Dates: start: 20080224, end: 2008
  2. CLOZARIL [Suspect]
     Active Substance: CLOZAPINE
     Dosage: UNK
     Route: 048
     Dates: start: 200908
  3. TETRAHYDROCANNABINOL [Concomitant]
     Active Substance: DRONABINOL
     Indication: PRODUCT USED FOR UNKNOWN INDICATION
     Dosage: UNK
     Route: 065
  4. OMEPRAZOLE. [Concomitant]
     Active Substance: OMEPRAZOLE
     Dosage: 20 MG, MORNING
     Route: 065
     Dates: start: 2007
  5. CLOZARIL [Suspect]
     Active Substance: CLOZAPINE
     Indication: SCHIZOPHRENIA
     Dosage: UNK
     Route: 048
     Dates: start: 2004
  6. OLANZAPINE. [Suspect]
     Active Substance: OLANZAPINE
     Indication: SCHIZOPHRENIA
     Dosage: 15 MG, QD
     Route: 065
  7. FLUVOXAMINE [Concomitant]
     Active Substance: FLUVOXAMINE
     Dosage: 25 MG, MORNING
     Route: 065
     Dates: start: 2006
  8. CLOZARIL [Suspect]
     Active Substance: CLOZAPINE
     Dosage: UNK
     Route: 048
     Dates: start: 200506
  9. OXYCONTIN [Concomitant]
     Active Substance: OXYCODONE HYDROCHLORIDE
     Indication: PRODUCT USED FOR UNKNOWN INDICATION
     Dosage: UNK
     Route: 065
  10. EFFEXOR XR [Concomitant]
     Active Substance: VENLAFAXINE HYDROCHLORIDE
     Indication: PRODUCT USED FOR UNKNOWN INDICATION
     Dosage: 75 MG, MORNING
     Route: 065
     Dates: start: 200510
  11. MIRTAZAPINE. [Concomitant]
     Active Substance: MIRTAZAPINE
     Indication: PRODUCT USED FOR UNKNOWN INDICATION
     Dosage: 30 MG, QHS
     Route: 065
  12. BENZHEXOL [Concomitant]
     Active Substance: TRIHEXYPHENIDYL
     Indication: PRODUCT USED FOR UNKNOWN INDICATION
     Dosage: 2 MG, BID
     Route: 065
  13. PANTOPRAZOLE [Concomitant]
     Active Substance: PANTOPRAZOLE SODIUM
     Indication: PRODUCT USED FOR UNKNOWN INDICATION
     Dosage: 40 MG, MORNING
     Route: 065
  14. CLOZARIL [Suspect]
     Active Substance: CLOZAPINE
     Dosage: 300 MG, QHS
     Route: 048
     Dates: start: 20071123
  15. METHAMPHETAMINE [Concomitant]
     Active Substance: METHAMPHETAMINE
     Indication: PRODUCT USED FOR UNKNOWN INDICATION
     Dosage: UNK
     Route: 065
  16. CLOZARIL [Suspect]
     Active Substance: CLOZAPINE
     Dosage: 275 MG, QHS
     Route: 048
     Dates: start: 20080131
  17. CLOZARIL [Suspect]
     Active Substance: CLOZAPINE
     Dosage: 400 MG, QHS
     Route: 048
     Dates: start: 20100120
  18. ECSTASY [Concomitant]
     Active Substance: METHYLENEDIOXYMETHAMPHETAMINE
     Indication: PRODUCT USED FOR UNKNOWN INDICATION
     Dosage: UNK
     Route: 065
  19. QUETIAPINE. [Concomitant]
     Active Substance: QUETIAPINE
     Indication: PRODUCT USED FOR UNKNOWN INDICATION
     Dosage: 300 MG, QD
     Route: 065
     Dates: start: 200510
  20. OMEPRAZOLE. [Concomitant]
     Active Substance: OMEPRAZOLE
     Dosage: 20 MG, MORNING
     Route: 065
     Dates: start: 2006
  21. RISPERIDONE. [Concomitant]
     Active Substance: RISPERIDONE
     Indication: PRODUCT USED FOR UNKNOWN INDICATION
     Dosage: 37.5 MG TO 50 MG EVERY 2 WEEKS
     Route: 030
     Dates: start: 200906, end: 2009
  22. OLANZAPINE. [Suspect]
     Active Substance: OLANZAPINE
     Dosage: 20 MG, UNK
     Route: 065
     Dates: start: 2008
  23. OLANZAPINE. [Suspect]
     Active Substance: OLANZAPINE
     Dosage: 20 MG, PRN
     Route: 065
     Dates: start: 2009
  24. OMEPRAZOLE. [Concomitant]
     Active Substance: OMEPRAZOLE
     Indication: PRODUCT USED FOR UNKNOWN INDICATION
     Dosage: 20 MG, MORNING
     Route: 065
     Dates: start: 200510
  25. LITHIUM. [Concomitant]
     Active Substance: LITHIUM
     Indication: AFFECTIVE DISORDER
     Dosage: 1350 MG, QD (450 MG MORNING AND 900 MG NIGHT)
     Route: 065
     Dates: start: 2009
  26. CLOZARIL [Suspect]
     Active Substance: CLOZAPINE
     Dosage: 400 MG, QHS
     Route: 048
     Dates: start: 20050516
  27. CLOZARIL [Suspect]
     Active Substance: CLOZAPINE
     Dosage: 300 MG, UNK
     Route: 048
     Dates: start: 20100127, end: 201003
  28. FLUVOXAMINE [Concomitant]
     Active Substance: FLUVOXAMINE
     Indication: PRODUCT USED FOR UNKNOWN INDICATION
     Dosage: 25 MG, MORNING
     Route: 065
     Dates: start: 200510
  29. CLOZARIL [Suspect]
     Active Substance: CLOZAPINE
     Dosage: 600 MG, QD (200 MG MORNING AND 400 MG NIGHT)
     Route: 048
     Dates: start: 200510
  30. OLANZAPINE. [Suspect]
     Active Substance: OLANZAPINE
     Dosage: 10 MG, BID
     Route: 065
     Dates: start: 20071123
  31. OLANZAPINE. [Suspect]
     Active Substance: OLANZAPINE
     Dosage: 15 MG, PRN
     Route: 065
  32. FLUVOXAMINE [Concomitant]
     Active Substance: FLUVOXAMINE
     Dosage: 25 MG, MORNING
     Route: 065
     Dates: start: 2007
  33. SEROQUEL [Concomitant]
     Active Substance: QUETIAPINE FUMARATE
     Indication: PRODUCT USED FOR UNKNOWN INDICATION
     Dosage: 300 MG, EVENING
     Route: 065
     Dates: start: 2006
  34. CHLORPROMAZINE. [Concomitant]
     Active Substance: CHLORPROMAZINE
     Indication: PRODUCT USED FOR UNKNOWN INDICATION
     Dosage: 100 MG, PRN AT NIGHT
     Route: 065
     Dates: start: 2009

REACTIONS (20)
  - Red blood cell count decreased [Recovered/Resolved]
  - Red blood cell count decreased [Recovered/Resolved]
  - Haematocrit decreased [Recovered/Resolved]
  - Pleurisy [Unknown]
  - White blood cell count decreased [Recovered/Resolved]
  - White blood cell count decreased [Recovered/Resolved]
  - Drug ineffective [Unknown]
  - Appendicitis perforated [Unknown]
  - Sepsis [Unknown]
  - Malaise [Unknown]
  - Haematocrit decreased [Recovered/Resolved]
  - Neutrophil count decreased [Recovered/Resolved]
  - Pneumonia [Unknown]
  - Aggression [Unknown]
  - Haemoglobin decreased [Recovered/Resolved]
  - Blood creatine phosphokinase increased [Unknown]
  - Psychotic disorder [Unknown]
  - White blood cell count decreased [Recovered/Resolved]
  - Haemoglobin decreased [Recovered/Resolved]
  - Neutrophil count decreased [Recovered/Resolved]

NARRATIVE: CASE EVENT DATE: 20051027
